FAERS Safety Report 21621944 (Version 7)
Quarter: 2025Q3

REPORT INFORMATION
  Report Type: Spontaneous
  Country: CA (occurrence: CA)
  Receive Date: 20221121
  Receipt Date: 20250801
  Transmission Date: 20251021
  Serious: Yes (Hospitalization, Disabling, Other)
  Sender: ANI
  Company Number: CA-ANIPHARMA-2019-CA-001103

PATIENT
  Age: 72 Year
  Sex: Male

DRUGS (35)
  1. CASODEX [Suspect]
     Active Substance: BICALUTAMIDE
     Indication: Product used for unknown indication
     Route: 048
  2. FOLATE SODIUM [Suspect]
     Active Substance: FOLATE SODIUM
     Route: 065
  3. LANSOPRAZOLE [Suspect]
     Active Substance: LANSOPRAZOLE
     Route: 065
  4. METHOTREXATE [Suspect]
     Active Substance: METHOTREXATE
     Route: 065
  5. SODIUM BICARBONATE\SODIUM CHLORIDE [Suspect]
     Active Substance: SODIUM BICARBONATE\SODIUM CHLORIDE
     Route: 065
  6. SULFAMETHOXAZOLE AND TRIMETHOPRIM [Suspect]
     Active Substance: SULFAMETHOXAZOLE\TRIMETHOPRIM
     Route: 065
  7. VENTOLIN [Suspect]
     Active Substance: ALBUTEROL SULFATE
     Route: 065
  8. PREDNISONE [Suspect]
     Active Substance: PREDNISONE
     Route: 065
  9. OMNARIS [Suspect]
     Active Substance: CICLESONIDE
     Route: 045
  10. CALCIUM CARBONATE [Suspect]
     Active Substance: CALCIUM CARBONATE
     Route: 065
  11. AZELASTINE HYDROCHLORIDE AND FLUTICASONE PROPIONATE [Suspect]
     Active Substance: AZELASTINE HYDROCHLORIDE\FLUTICASONE PROPIONATE
     Route: 065
  12. NUCALA [Concomitant]
     Active Substance: MEPOLIZUMAB
     Route: 065
  13. ERGOCALCIFEROL [Suspect]
     Active Substance: ERGOCALCIFEROL
     Route: 065
  14. IOBITRIDOL [Suspect]
     Active Substance: IOBITRIDOL
     Route: 065
  15. GOSERELIN [Suspect]
     Active Substance: GOSERELIN
     Route: 058
  16. BEVACIZUMAB [Suspect]
     Active Substance: BEVACIZUMAB
     Route: 042
  17. VITAMIN D4 [Suspect]
     Active Substance: VITAMIN D4
  18. IOBITRIDOL [Suspect]
     Active Substance: IOBITRIDOL
  19. BORNEOL [Suspect]
     Active Substance: BORNEOL
  20. AZELASTINE HYDROCHLORIDE\FLUTICASONE PROPIONATE [Suspect]
     Active Substance: AZELASTINE HYDROCHLORIDE\FLUTICASONE PROPIONATE
  21. BROMHEXINE HYDROCHLORIDE [Suspect]
     Active Substance: BROMHEXINE HYDROCHLORIDE
  22. CALCIUM CARBONATE [Suspect]
     Active Substance: CALCIUM CARBONATE
  23. CALCIUM GLUCONATE [Suspect]
     Active Substance: CALCIUM GLUCONATE
  24. CICLESONIDE [Suspect]
     Active Substance: CICLESONIDE
     Route: 048
  25. RAMIPRIL [Suspect]
     Active Substance: RAMIPRIL
     Route: 048
  26. FLUTICASONE PROPIONATE\SALMETEROL XINAFOATE [Suspect]
     Active Substance: FLUTICASONE PROPIONATE\SALMETEROL XINAFOATE
  27. VITAMIN D [Suspect]
     Active Substance: VITAMIN D NOS
  28. NUCALA [Concomitant]
     Active Substance: MEPOLIZUMAB
  29. FOSAMAX [Suspect]
     Active Substance: ALENDRONATE SODIUM
     Route: 048
  30. CALCIUM [Suspect]
     Active Substance: CALCIUM
     Route: 065
  31. CYCLOPHOSPHAMIDE [Suspect]
     Active Substance: CYCLOPHOSPHAMIDE
     Route: 065
  32. ADVAIR HFA [Suspect]
     Active Substance: FLUTICASONE PROPIONATE\SALMETEROL XINAFOATE
     Route: 065
  33. CYCLOPHOSPHAMIDE [Suspect]
     Active Substance: CYCLOPHOSPHAMIDE
  34. BOS TAURUS GALLSTONE [Suspect]
     Active Substance: BOS TAURUS GALLSTONE
  35. SULFAMETHIZOLE\TRIMETHOPRIM [Suspect]
     Active Substance: SULFAMETHIZOLE\TRIMETHOPRIM

REACTIONS (36)
  - Cardiac septal defect [Recovered/Resolved with Sequelae]
  - Central nervous system mass [Recovered/Resolved with Sequelae]
  - Chronic sinusitis [Recovered/Resolved with Sequelae]
  - Eosinophilic granulomatosis with polyangiitis [Recovered/Resolved with Sequelae]
  - Eosinophilic myocarditis [Recovered/Resolved with Sequelae]
  - Eosinophilic pneumonia [Recovered/Resolved with Sequelae]
  - Memory impairment [Recovered/Resolved with Sequelae]
  - Nasal polyps [Recovered/Resolved with Sequelae]
  - Obstructive airways disorder [Recovered/Resolved with Sequelae]
  - Prostate cancer [Recovered/Resolved with Sequelae]
  - Haematuria [Recovered/Resolved with Sequelae]
  - Renal disorder [Recovered/Resolved with Sequelae]
  - Respiratory symptom [Recovered/Resolved with Sequelae]
  - Ventricular hypokinesia [Recovered/Resolved with Sequelae]
  - Viral infection [Recovered/Resolved with Sequelae]
  - Wall motion score index abnormal [Recovered/Resolved with Sequelae]
  - Pneumonia [Recovered/Resolved with Sequelae]
  - Microangiopathy [Recovered/Resolved with Sequelae]
  - Drug ineffective [Recovered/Resolved with Sequelae]
  - Atopy [Recovered/Resolved with Sequelae]
  - Haemorrhage [Recovered/Resolved with Sequelae]
  - Obesity [Recovered/Resolved with Sequelae]
  - Lacrimation increased [Recovered/Resolved with Sequelae]
  - Lymphopenia [Recovered/Resolved with Sequelae]
  - Nodule [Recovered/Resolved with Sequelae]
  - Productive cough [Recovered/Resolved with Sequelae]
  - Respiratory tract infection [Recovered/Resolved with Sequelae]
  - Eosinophil count decreased [Unknown]
  - Condition aggravated [Recovered/Resolved with Sequelae]
  - Product use in unapproved indication [Recovered/Resolved with Sequelae]
  - Hypertension [Recovered/Resolved with Sequelae]
  - Confusional state [Recovered/Resolved with Sequelae]
  - Eosinophil count increased [Recovered/Resolved with Sequelae]
  - Asthma [Recovered/Resolved with Sequelae]
  - Airway remodelling [Recovered/Resolved with Sequelae]
  - Blood immunoglobulin E increased [Recovered/Resolved with Sequelae]
